FAERS Safety Report 11784227 (Version 1)
Quarter: 2015Q4

REPORT INFORMATION
  Report Type: Report from Study
  Country: IN (occurrence: IN)
  Receive Date: 20151128
  Receipt Date: 20151128
  Transmission Date: 20160305
  Serious: Yes (Death)
  Sender: FDA-Public Use
  Company Number: PHHY2015IN156124

PATIENT
  Age: 92 Year
  Sex: Male

DRUGS (2)
  1. SYNDOPA [Concomitant]
     Active Substance: LEVODOPA
     Indication: PARKINSON^S DISEASE
     Dosage: UNK, QD
     Route: 048
     Dates: start: 20130322
  2. EXELON PATCH [Suspect]
     Active Substance: RIVASTIGMINE
     Indication: DEMENTIA ALZHEIMER^S TYPE
     Dosage: 9.5 MG, QD (10 CM2 PATCH)
     Route: 062
     Dates: start: 20130322

REACTIONS (1)
  - Cardiac arrest [Fatal]
